FAERS Safety Report 9247772 (Version 1)
Quarter: 2013Q2

REPORT INFORMATION
  Report Type: Spontaneous
  Country: US (occurrence: None)
  Receive Date: 20130419
  Receipt Date: 20130419
  Transmission Date: 20140414
  Serious: No
  Sender: FDA-Public Use
  Company Number: None

PATIENT
  Sex: Male
  Weight: 89.36 kg

DRUGS (1)
  1. LEXAPRO [Suspect]
     Dosage: 10 MG 1/2  8  DAY PO
     Route: 048
     Dates: start: 20030509

REACTIONS (5)
  - Abdominal pain [None]
  - Discomfort [None]
  - Diarrhoea [None]
  - Abdominal pain [None]
  - Activities of daily living impaired [None]
